FAERS Safety Report 6393656-8 (Version None)
Quarter: 2009Q4

REPORT INFORMATION
  Report Type: 
  Country: None (occurrence: None)
  Receive Date: 20091008
  Receipt Date: 20090928
  Transmission Date: 20100525
  Serious: Yes (Other)
  Sender: FDA-Public Use
  Company Number: DE-JNJFOC-20090602136

PATIENT
  Sex: Female
  Weight: 80 kg

DRUGS (3)
  1. INVEGA [Suspect]
     Route: 048
  2. INVEGA [Suspect]
     Indication: SCHIZOAFFECTIVE DISORDER
     Route: 048
  3. VIROSTATIC DRUG NOS [Concomitant]
     Indication: HEPATITIS B
     Route: 065

REACTIONS (2)
  - HEPATIC CIRRHOSIS [None]
  - VIRAL LOAD INCREASED [None]
